APPROVED DRUG PRODUCT: KOMBIGLYZE XR
Active Ingredient: METFORMIN HYDROCHLORIDE; SAXAGLIPTIN HYDROCHLORIDE
Strength: 1GM;EQ 5MG BASE **Federal Register determination that product was not discontinued or withdrawn for safety or effectiveness reasons**
Dosage Form/Route: TABLET, EXTENDED RELEASE;ORAL
Application: N200678 | Product #002
Applicant: ASTRAZENECA AB
Approved: Nov 5, 2010 | RLD: Yes | RS: No | Type: DISCN